FAERS Safety Report 18742975 (Version 1)
Quarter: 2021Q1

REPORT INFORMATION
  Report Type: Spontaneous
  Country: US (occurrence: US)
  Receive Date: 20210114
  Receipt Date: 20210114
  Transmission Date: 20210419
  Serious: No
  Sender: FDA-Public Use
  Company Number: US-NOVOPROD-752933

PATIENT
  Age: 67 Year
  Sex: Female

DRUGS (1)
  1. OZEMPIC [Suspect]
     Active Substance: SEMAGLUTIDE
     Indication: TYPE 2 DIABETES MELLITUS
     Dosage: 1 MG, QW
     Route: 058
     Dates: start: 202002, end: 2020

REACTIONS (12)
  - Chills [Recovered/Resolved]
  - Food aversion [Not Recovered/Not Resolved]
  - Decreased appetite [Recovering/Resolving]
  - Vomiting [Recovered/Resolved]
  - Nausea [Not Recovered/Not Resolved]
  - Off label use [Unknown]
  - Depression [Recovering/Resolving]
  - Eructation [Unknown]
  - Anxiety [Recovering/Resolving]
  - Eructation [Not Recovered/Not Resolved]
  - Gastrooesophageal reflux disease [Not Recovered/Not Resolved]
  - Regurgitation [Unknown]

NARRATIVE: CASE EVENT DATE: 2020
